FAERS Safety Report 14826310 (Version 12)
Quarter: 2021Q3

REPORT INFORMATION
  Report Type: Report from Study
  Country: HU (occurrence: HU)
  Receive Date: 20180430
  Receipt Date: 20210815
  Transmission Date: 20211014
  Serious: Yes (Hospitalization)
  Sender: FDA-Public Use
  Company Number: HU-ROCHE-2111746

PATIENT
  Age: 70 Year
  Sex: Female
  Weight: 64 kg

DRUGS (18)
  1. EUTHYROX [Concomitant]
     Active Substance: LEVOTHYROXINE SODIUM
     Indication: HYPOTHYROIDISM
     Dates: start: 20171005
  2. BERODUAL N [Concomitant]
     Active Substance: FENOTEROL HYDROBROMIDE\IPRATROPIUM BROMIDE
     Indication: CHRONIC OBSTRUCTIVE PULMONARY DISEASE
     Dates: start: 201611
  3. LOPERAMIDE [Concomitant]
     Active Substance: LOPERAMIDE
     Indication: DIARRHOEA
     Dates: start: 20180221
  4. NACL [Concomitant]
     Active Substance: SODIUM CHLORIDE
     Indication: GASTROENTERITIS
     Dates: start: 20180221
  5. BETALOC ZOK [Concomitant]
     Active Substance: METOPROLOL SUCCINATE
     Indication: HYPERTENSION
     Dates: start: 2006
  6. CO?RENITEC [Concomitant]
     Active Substance: ENALAPRIL\HYDROCHLOROTHIAZIDE
     Indication: HYPERTENSION
     Dates: start: 201701
  7. KABI GLUTAMINE [Concomitant]
     Active Substance: GLUTAMINE
     Indication: PARAESTHESIA
     Dates: start: 20170713
  8. KALDYUM [Concomitant]
     Active Substance: POTASSIUM CHLORIDE
     Indication: HYPOKALAEMIA
     Dosage: RETARD
     Dates: start: 20180110
  9. APRANAX [Concomitant]
     Active Substance: NAPROXEN
     Indication: ARTHRALGIA
     Dates: start: 2012
  10. ATEZOLIZUMAB. [Suspect]
     Active Substance: ATEZOLIZUMAB
     Indication: NON-SMALL CELL LUNG CANCER STAGE IV
     Dosage: MOST RECENT DOSE OF ATEZOLIZUMAB (1200 MG) PRIOR TO EVENT FIRST EPISODE OF CONTACT DERMATITIS ONSET
     Route: 042
     Dates: start: 20170419
  11. SYMBICORT [Concomitant]
     Active Substance: BUDESONIDE\FORMOTEROL FUMARATE DIHYDRATE
     Indication: CHRONIC OBSTRUCTIVE PULMONARY DISEASE
     Dates: start: 2003
  12. MINIPRESS [Concomitant]
     Active Substance: PRAZOSIN HYDROCHLORIDE
     Indication: HYPERTENSION
     Dates: start: 2006
  13. SUPRASTIN [Concomitant]
     Active Substance: CHLOROPYRAMINE HYDROCHLORIDE
     Indication: PARAESTHESIA
     Dates: start: 20170713
  14. KCL [Concomitant]
     Active Substance: POTASSIUM CHLORIDE
     Indication: GASTROENTERITIS
     Dates: start: 20180221
  15. RETAFYLLIN [Concomitant]
     Active Substance: THEOPHYLLINE
     Indication: CHRONIC OBSTRUCTIVE PULMONARY DISEASE
     Dates: start: 2003
  16. BRETARIS GENUAIR [Concomitant]
     Active Substance: ACLIDINIUM BROMIDE
     Indication: CHRONIC OBSTRUCTIVE PULMONARY DISEASE
     Dates: start: 201611
  17. L?THYROXIN [Concomitant]
     Active Substance: LEVOTHYROXINE SODIUM
     Indication: THYROXINE DECREASED
     Dates: start: 20180110
  18. L?THYROXIN [Concomitant]
     Active Substance: LEVOTHYROXINE SODIUM
     Indication: TRI-IODOTHYRONINE DECREASED

REACTIONS (1)
  - Autoimmune dermatitis [Recovering/Resolving]

NARRATIVE: CASE EVENT DATE: 20180415
